FAERS Safety Report 22232941 (Version 1)
Quarter: 2023Q2

REPORT INFORMATION
  Report Type: Spontaneous
  Country: US (occurrence: US)
  Receive Date: 20230420
  Receipt Date: 20230420
  Transmission Date: 20230721
  Serious: Yes (Hospitalization, Other)
  Sender: FDA-Public Use
  Company Number: US-BECTON DICKINSON-US-BD-23-000126

PATIENT
  Age: 55 Year
  Sex: Male
  Weight: 86.2 kg

DRUGS (5)
  1. CHLORAPREP [Suspect]
     Active Substance: CHLORHEXIDINE GLUCONATE\ISOPROPYL ALCOHOL
     Indication: Product used for unknown indication
     Dosage: UNK
     Route: 065
  2. REMODULIN [Suspect]
     Active Substance: TREPROSTINIL
     Indication: Pulmonary arterial hypertension
     Dosage: UNK, CONTINUING
     Route: 041
     Dates: start: 20220509
  3. REMODULIN [Suspect]
     Active Substance: TREPROSTINIL
     Dosage: 0.059 MICROGRAM/KILOGRAM, CONTINUOUS
     Route: 041
  4. AMBRISENTAN [Concomitant]
     Active Substance: AMBRISENTAN
     Indication: Product used for unknown indication
     Dosage: UNK
     Route: 065
  5. SILDENAFIL [Concomitant]
     Active Substance: SILDENAFIL
     Indication: Product used for unknown indication
     Dosage: UNK
     Route: 065

REACTIONS (4)
  - Vascular device infection [Unknown]
  - Vascular device occlusion [Recovered/Resolved]
  - Application site infection [Unknown]
  - Application site rash [Unknown]

NARRATIVE: CASE EVENT DATE: 20230211
